FAERS Safety Report 9767685 (Version 2)
Quarter: 2013Q4

REPORT INFORMATION
  Report Type: Spontaneous
  Country: DE (occurrence: DE)
  Receive Date: 20131217
  Receipt Date: 20131217
  Transmission Date: 20140711
  Serious: Yes (Hospitalization, Other)
  Sender: FDA-Public Use
  Company Number: DE-JNJFOC-20131116962

PATIENT
  Sex: 0

DRUGS (2)
  1. XARELTO [Suspect]
     Indication: PRODUCT USED FOR UNKNOWN INDICATION
     Route: 048
  2. HEPARIN [Concomitant]
     Route: 065

REACTIONS (5)
  - Haematoma [Unknown]
  - Haemorrhage [Unknown]
  - Haemorrhage [Unknown]
  - Traumatic haemorrhage [Unknown]
  - Hypocoagulable state [Unknown]
